FAERS Safety Report 5807122-9 (Version None)
Quarter: 2008Q3

REPORT INFORMATION
  Report Type: 
  Country: None (occurrence: None)
  Receive Date: 20080711
  Receipt Date: 20080626
  Transmission Date: 20090109
  Serious: Yes (Hospitalization, Disabling)
  Sender: FDA-Public Use
  Company Number: PHHO2008TR07607

PATIENT
  Sex: Female
  Weight: 55 kg

DRUGS (7)
  1. BLINDED NO TREATMENT RECEIVED NOMED [Suspect]
     Indication: CARCINOID TUMOUR
     Dosage: DOUBLE BLIND
     Route: 048
     Dates: start: 20080530, end: 20080610
  2. BLINDED PLACEBO COMP-PLA+ [Suspect]
     Indication: CARCINOID TUMOUR
     Dosage: DOUBLE BLIND
     Route: 048
     Dates: start: 20080530, end: 20080610
  3. BLINDED RAD 666 RAD+TAB [Suspect]
     Indication: CARCINOID TUMOUR
     Dosage: DOUBLE BLIND
     Route: 048
     Dates: start: 20080530, end: 20080610
  4. SANDOSTATIN LAR [Suspect]
     Indication: CARCINOID TUMOUR
     Dosage: DOUBLE BLIND
     Route: 048
     Dates: start: 20080530, end: 20080610
  5. HYZAAR [Concomitant]
     Dosage: 50/125 MG
     Route: 048
     Dates: start: 19980101
  6. LOMOTIL [Concomitant]
     Dosage: 2.5 MG BID
     Route: 048
     Dates: start: 20080521
  7. VOLTAREN [Concomitant]
     Dosage: 75 MG / DAY
     Route: 048
     Dates: start: 20080401

REACTIONS (5)
  - APHTHOUS STOMATITIS [None]
  - DIARRHOEA [None]
  - HEPATOTOXICITY [None]
  - HYPOPHAGIA [None]
  - RENAL FAILURE ACUTE [None]
